FAERS Safety Report 20209112 (Version 7)
Quarter: 2022Q1

REPORT INFORMATION
  Report Type: Report from Study
  Country: IE (occurrence: IE)
  Receive Date: 20211220
  Receipt Date: 20220309
  Transmission Date: 20220424
  Serious: Yes (Death, Hospitalization, Other)
  Sender: FDA-Public Use
  Company Number: IE-BRISTOL-MYERS SQUIBB COMPANY-BMS-2021-132811

PATIENT
  Age: 62 Year
  Sex: Female
  Weight: 57 kg

DRUGS (32)
  1. RELATLIMAB [Suspect]
     Active Substance: RELATLIMAB
     Indication: Non-small cell lung cancer
     Dosage: 100 MILLILITER
     Route: 042
     Dates: start: 20211129, end: 20211129
  2. NIVOLUMAB [Suspect]
     Active Substance: NIVOLUMAB
     Indication: Non-small cell lung cancer
     Dosage: 100 MILLILITER
     Route: 042
     Dates: start: 20211129, end: 20211129
  3. CARBOPLATIN [Suspect]
     Active Substance: CARBOPLATIN
     Indication: Non-small cell lung cancer
     Dosage: 500 MILLIGRAM
     Route: 065
     Dates: start: 20211129, end: 20211129
  4. PEMETREXED DISODIUM [Suspect]
     Active Substance: PEMETREXED DISODIUM
     Indication: Non-small cell lung cancer
     Dosage: 800 MILLIGRAM
     Route: 065
     Dates: start: 20211129, end: 20211129
  5. MORPHINE [Concomitant]
     Active Substance: MORPHINE
     Indication: Product used for unknown indication
     Dosage: 2.5 MILLIGRAM, Q3H
     Route: 048
     Dates: start: 20211123, end: 20211206
  6. HARTMANS [Concomitant]
     Indication: Product used for unknown indication
     Dosage: 1 DOSAGE FORM: 1 UNIT NOS, ONCE
     Route: 042
     Dates: start: 20211206, end: 20211206
  7. HARTMANS [Concomitant]
     Dosage: 1 DF = 1 UNITS NOS
     Route: 042
     Dates: start: 20211206, end: 20211206
  8. HARTMANS [Concomitant]
     Dosage: 1 DOSAGE FORM= 1 UNITS NOS, QID
     Route: 042
     Dates: start: 20211207, end: 20211207
  9. HARTMANS [Concomitant]
     Dosage: 1 DOSAGE FORM= 1 UNITS NOS, AS NEEDED
     Route: 042
     Dates: start: 20211210, end: 20211210
  10. ENOXAPARIN SODIUM [Concomitant]
     Active Substance: ENOXAPARIN SODIUM
     Indication: Product used for unknown indication
     Dosage: 40 MILLIGRAM, QD
     Route: 048
     Dates: start: 20211206, end: 20211210
  11. ACETAMINOPHEN [Concomitant]
     Active Substance: ACETAMINOPHEN
     Indication: Product used for unknown indication
     Dosage: 1 GRAM, QID
     Route: 048
     Dates: start: 20211206, end: 20211211
  12. CYCLIZINE [Concomitant]
     Active Substance: CYCLIZINE
     Indication: Product used for unknown indication
     Dosage: 50 MILLIGRAM, TID
     Route: 047
     Dates: start: 20211123, end: 20211211
  13. FORTISIP COMPACT PROTEIN [Concomitant]
     Indication: Decreased appetite
     Dosage: 1 DOSAGE FORM= 1 UNIT NOS
     Route: 048
     Dates: start: 20211101
  14. ESOMEPRAZOLE [Concomitant]
     Active Substance: ESOMEPRAZOLE
     Indication: Product used for unknown indication
     Dosage: 40 MILLIGRAM, QD
     Route: 048
     Dates: start: 20211123, end: 20211211
  15. DEXAMETHASONE [Concomitant]
     Active Substance: DEXAMETHASONE
     Indication: Product used for unknown indication
     Dosage: 4 MILLIGRAM, BID
     Route: 048
     Dates: start: 20211128, end: 20211201
  16. METOCLOPRAMIDE [Concomitant]
     Active Substance: METOCLOPRAMIDE
     Indication: Product used for unknown indication
     Dosage: 10 MILLIGRAM, AS NEEDED
     Route: 048
     Dates: start: 20211129, end: 20211206
  17. IBUPROFEN [Concomitant]
     Active Substance: IBUPROFEN
     Indication: Product used for unknown indication
     Dosage: 400 MILLIGRAM, TID
     Route: 048
     Dates: start: 20211123
  18. PARAFFIN [Concomitant]
     Active Substance: PARAFFIN
     Indication: Product used for unknown indication
     Dosage: 1 DOSAGE FORM = 1 UNITS NOS, BID
     Route: 061
     Dates: start: 20211210, end: 20211211
  19. KCL + NACL 0.9% [Concomitant]
     Indication: Hypokalaemia
     Dosage: 1 DOSAGE FORM = 500 UNITS NOS, AS NEEDED
     Route: 042
     Dates: start: 20211210, end: 20211210
  20. KCL + NACL 0.9% [Concomitant]
     Dosage: 1 DOSAGE FORM = 250 UNITS NOS, AS NEEDED
     Route: 042
     Dates: start: 20211210, end: 20211210
  21. DEXTROSE;POTASSIUM CHLORIDE [Concomitant]
     Indication: Hypokalaemia
     Dosage: 1 DOSAGE FORM = 1 UNITS NOS, AS NEEDED
     Route: 042
     Dates: start: 20211210, end: 20211210
  22. DEXTROSE;POTASSIUM CHLORIDE [Concomitant]
     Dosage: 1 DOSAGE FORM= 1 UNITS NOS, QID
     Route: 042
     Dates: start: 20211211, end: 20211211
  23. MAGNESIUM;POTASSIUM;SODIUM CHLORIDE [Concomitant]
     Indication: Hypomagnesaemia
     Dosage: 1 DOSAGE FORM = 2 UNITS NOS, QID
     Route: 042
     Dates: end: 20211211
  24. MAGNESIUM;POTASSIUM;SODIUM CHLORIDE [Concomitant]
     Indication: Hypokalaemia
  25. MORPHINE SULFATE [Concomitant]
     Active Substance: MORPHINE SULFATE
     Indication: Product used for unknown indication
     Dosage: 5 MILLIGRAM, EVERY 24 HOURS
     Route: 048
     Dates: start: 20211209, end: 20211209
  26. BUTYLSCOPOLAMINE BROMIDE [Concomitant]
     Active Substance: BUTYLSCOPOLAMINE BROMIDE
     Indication: Product used for unknown indication
     Dosage: 10 MILLIGRAM, TID
     Route: 058
     Dates: start: 20211211, end: 20211211
  27. BECLOMETHASONE DIPROPIONATE [Concomitant]
     Active Substance: BECLOMETHASONE DIPROPIONATE
     Indication: Dyspnoea
     Dosage: 1 DOSAGE FORM= 1 UNTIS NOS, QD
     Route: 048
     Dates: start: 20211210, end: 20211211
  28. MIDAZOLAM [Concomitant]
     Active Substance: MIDAZOLAM
     Indication: Product used for unknown indication
     Dosage: 2.5 MILLIGRAM, QID
     Route: 048
     Dates: start: 20211211, end: 20211211
  29. MIDAZOLAM [Concomitant]
     Active Substance: MIDAZOLAM
     Dosage: 5 MILLIGRAM, EVERY 24 HOURS
     Route: 058
     Dates: start: 20211211, end: 20211211
  30. MORPHINE [Concomitant]
     Active Substance: MORPHINE
     Indication: Product used for unknown indication
     Dosage: 2.5 MILLIGRAM, QID
     Route: 058
     Dates: start: 20211210, end: 20211211
  31. MORPHINE [Concomitant]
     Active Substance: MORPHINE
     Dosage: 5 MILLIGRAM, EVERY 24 HOURS
     Route: 058
     Dates: start: 20211211, end: 20211211
  32. PABRINEX HIGH POTENCY [Concomitant]
     Indication: Product used for unknown indication
     Dosage: 1 DOSAGE FORM=  1 UNITS NOS, QD
     Route: 048
     Dates: start: 20211211, end: 20211211

REACTIONS (5)
  - Mucosal inflammation [Not Recovered/Not Resolved]
  - Sepsis [Fatal]
  - Pneumonia [Not Recovered/Not Resolved]
  - Neutropenia [Not Recovered/Not Resolved]
  - Febrile neutropenia [Recovered/Resolved]

NARRATIVE: CASE EVENT DATE: 20211206
